FAERS Safety Report 21195269 (Version 1)
Quarter: 2022Q3

REPORT INFORMATION
  Report Type: Spontaneous
  Country: US (occurrence: US)
  Receive Date: 20220810
  Receipt Date: 20220810
  Transmission Date: 20221026
  Serious: Yes (Hospitalization)
  Sender: FDA-Public Use
  Company Number: US-COLLEGIUM PHARMACEUTICAL, INC.-20220800090

PATIENT

DRUGS (3)
  1. XTAMPZA [Suspect]
     Active Substance: OXYCODONE
     Indication: Product used for unknown indication
  2. ALCOHOL [Suspect]
     Active Substance: ALCOHOL
     Indication: Product used for unknown indication
     Route: 065
  3. UNSPECIFIED INGREDIENT [Concomitant]
     Active Substance: UNSPECIFIED INGREDIENT
     Indication: Affective disorder

REACTIONS (8)
  - Unresponsive to stimuli [Unknown]
  - Limbic encephalitis [Unknown]
  - Flat affect [Unknown]
  - Social avoidant behaviour [Unknown]
  - Thought blocking [Unknown]
  - Speech disorder developmental [Unknown]
  - Poverty of thought content [Unknown]
  - Drug abuse [Unknown]
